FAERS Safety Report 8585611-4 (Version None)
Quarter: 2012Q3

REPORT INFORMATION
  Report Type: 
  Country: None (occurrence: None)
  Receive Date: 20120810
  Receipt Date: 20120731
  Transmission Date: 20120928
  Serious: Yes (Other)
  Sender: FDA-Public Use
  Company Number: US-JNJFOC-20120606225

PATIENT
  Sex: Male
  Weight: 86.86 kg

DRUGS (4)
  1. MULTI-VITAMINS [Concomitant]
     Route: 065
  2. STELARA [Suspect]
     Indication: PSORIASIS
     Route: 058
     Dates: start: 20110323
  3. CHOLECALCIFEROL [Concomitant]
     Route: 065
  4. STELARA [Suspect]
     Route: 058
     Dates: start: 20120702

REACTIONS (1)
  - SEMINOMA [None]
